FAERS Safety Report 14376427 (Version 1)
Quarter: 2018Q1

REPORT INFORMATION
  Report Type: Report from Study
  Country: US (occurrence: US)
  Receive Date: 20180111
  Receipt Date: 20180111
  Transmission Date: 20180509
  Serious: Yes (Hospitalization)
  Sender: FDA-Public Use
  Company Number: US-BAYER-2017-237080

PATIENT
  Age: 64 Year
  Sex: Female

DRUGS (2)
  1. STIVARGA [Suspect]
     Active Substance: REGORAFENIB
     Indication: GASTRIC CANCER
     Dosage: DAILY DOSE 160 MG
     Route: 048
     Dates: start: 20170718
  2. STIVARGA [Suspect]
     Active Substance: REGORAFENIB
     Indication: GASTRIC CANCER
     Dosage: DAILY DOSE 160 MG
     Route: 048
     Dates: start: 20170821

REACTIONS (4)
  - Hospitalisation [None]
  - Nausea [None]
  - Dyspnoea exertional [None]
  - Fatigue [None]

NARRATIVE: CASE EVENT DATE: 20170821
